FAERS Safety Report 6016591-3 (Version None)
Quarter: 2008Q4

REPORT INFORMATION
  Report Type: 
  Country: None (occurrence: None)
  Receive Date: 20081222
  Receipt Date: 20081211
  Transmission Date: 20090506
  Serious: Yes (Other)
  Sender: FDA-Public Use
  Company Number: PHHY2008NL31902

PATIENT
  Sex: Female

DRUGS (1)
  1. SYNTOCINON [Suspect]
     Indication: PLACENTAL DISORDER
     Dosage: 5IE/1 ML TIMES PER 5IU
     Dates: start: 20081124

REACTIONS (1)
  - ELECTROCARDIOGRAM ABNORMAL [None]
